FAERS Safety Report 8584581-2 (Version None)
Quarter: 2012Q3

REPORT INFORMATION
  Report Type: 
  Country: None (occurrence: None)
  Receive Date: 20120810
  Receipt Date: 20120731
  Transmission Date: 20120928
  Serious: Yes (Hospitalization, Other)
  Sender: FDA-Public Use
  Company Number: US-009507513-1202USA00049

PATIENT

DRUGS (5)
  1. FOSAMAX PLUS D [Suspect]
     Indication: OSTEOPENIA
     Dosage: UNK MG, QW
     Route: 048
     Dates: start: 20050101, end: 20100101
  2. SYNTHROID [Concomitant]
     Indication: THYROID DISORDER
     Dates: start: 19950201
  3. FOSAMAX [Suspect]
     Dosage: 70 MG, QW
     Route: 048
     Dates: start: 20060224, end: 20060831
  4. FOSAMAX [Suspect]
     Indication: OSTEOPENIA
     Dosage: 70 MG, UNK
     Route: 048
     Dates: start: 20090305, end: 20090626
  5. FOSAMAX [Suspect]
     Dosage: 70 MG, QW
     Route: 048
     Dates: start: 20070614, end: 20070904

REACTIONS (52)
  - DEPRESSION SUICIDAL [None]
  - INFECTION [None]
  - HYPOPHOSPHATAEMIA [None]
  - HYPERTENSION [None]
  - TENOSYNOVITIS STENOSANS [None]
  - HYPOTHYROIDISM [None]
  - MYOCARDIAL ISCHAEMIA [None]
  - BLOOD PRESSURE INCREASED [None]
  - FEMORAL NECK FRACTURE [None]
  - MAJOR DEPRESSION [None]
  - PSORIASIS [None]
  - DYSLIPIDAEMIA [None]
  - DERMATITIS ALLERGIC [None]
  - PSYCHOTIC DISORDER [None]
  - TRIGGER FINGER [None]
  - CONTUSION [None]
  - ADVERSE DRUG REACTION [None]
  - TACHYCARDIA [None]
  - ALLERGIC SINUSITIS [None]
  - GASTRIC DILATATION [None]
  - HYPOVITAMINOSIS [None]
  - HYPOKALAEMIA [None]
  - INTERNAL HERNIA [None]
  - SPINAL OSTEOARTHRITIS [None]
  - FLUID RETENTION [None]
  - CATARACT [None]
  - POSTOPERATIVE ADHESION [None]
  - UTERINE DISORDER [None]
  - ANAEMIA [None]
  - RHEUMATOID ARTHRITIS [None]
  - BACTERIAL TEST [None]
  - FALL [None]
  - LEUKOCYTOSIS [None]
  - AUTOIMMUNE THYROIDITIS [None]
  - KYPHOSIS [None]
  - JOINT CONTRACTURE [None]
  - ATELECTASIS [None]
  - FATIGUE [None]
  - DEHYDRATION [None]
  - DEPRESSION [None]
  - INTESTINAL RESECTION [None]
  - TOOTH DISORDER [None]
  - BREAST CALCIFICATIONS [None]
  - WEIGHT INCREASED [None]
  - HIP FRACTURE [None]
  - GASTROINTESTINAL DISORDER [None]
  - BLOOD CREATINE PHOSPHOKINASE INCREASED [None]
  - POLLAKIURIA [None]
  - MYALGIA [None]
  - SMALL INTESTINAL OBSTRUCTION [None]
  - FALLOPIAN TUBE DISORDER [None]
  - DYSPNOEA EXERTIONAL [None]
